FAERS Safety Report 9963011 (Version 1)
Quarter: 2014Q1

REPORT INFORMATION
  Report Type: Spontaneous
  Country: US (occurrence: US)
  Receive Date: 20140305
  Receipt Date: 20140305
  Transmission Date: 20141002
  Serious: No
  Sender: FDA-Public Use
  Company Number: US-TARO-2013P1019538

PATIENT
  Age: 72 Year
  Sex: Female
  Weight: 113.4 kg

DRUGS (2)
  1. NYSTATIN CREAM USP 100,000 UNITS/G [Suspect]
     Indication: SKIN CANDIDA
     Route: 061
     Dates: start: 20130906, end: 20130913
  2. FIVE DIFFERENT UNSPECIFIED REGULAR VITAMINS [Concomitant]

REACTIONS (3)
  - Diarrhoea [Recovered/Resolved]
  - Abdominal pain upper [Recovered/Resolved]
  - Faecal incontinence [Recovered/Resolved]
